FAERS Safety Report 14455103 (Version 4)
Quarter: 2018Q1

REPORT INFORMATION
  Report Type: Report from Study
  Country: US (occurrence: US)
  Receive Date: 20180129
  Receipt Date: 20180222
  Transmission Date: 20180509
  Serious: Yes (Death, Hospitalization)
  Sender: FDA-Public Use
  Company Number: US-ACTELION-A-US2015-128630

PATIENT
  Age: 57 Year
  Sex: Female
  Weight: 93.42 kg

DRUGS (10)
  1. COUMADIN [Concomitant]
     Active Substance: WARFARIN SODIUM
  2. OPSUMIT [Suspect]
     Active Substance: MACITENTAN
     Indication: PULMONARY ARTERIAL HYPERTENSION
     Dosage: 10 MG, QD
     Route: 048
     Dates: start: 20151117
  3. REVATIO [Concomitant]
     Active Substance: SILDENAFIL CITRATE
     Dosage: UNK
  4. TREPROSTINIL DIOLAMIN [Concomitant]
     Active Substance: TREPROSTINIL DIOLAMINE
     Dosage: 69 NG/KG, PER MIN
  5. TREPROSTINIL DIOLAMIN [Concomitant]
     Active Substance: TREPROSTINIL DIOLAMINE
     Dosage: 75 NG/KG, PER MIN
  6. OPSUMIT [Suspect]
     Active Substance: MACITENTAN
     Dosage: 10 MG, QD
     Route: 048
     Dates: end: 20180214
  7. ADEMPAS [Concomitant]
     Active Substance: RIOCIGUAT
     Dosage: 1.5 MG, UNK
  8. TYVASO [Concomitant]
     Active Substance: TREPROSTINIL
  9. DILTIAZEM. [Concomitant]
     Active Substance: DILTIAZEM
  10. REMODULIN [Concomitant]
     Active Substance: TREPROSTINIL
     Dosage: UNK
     Dates: start: 20170308, end: 20180214

REACTIONS (29)
  - Productive cough [Unknown]
  - Catheter site haemorrhage [Unknown]
  - Death [Fatal]
  - Diarrhoea [Unknown]
  - Cardiac failure congestive [Unknown]
  - Insomnia [Unknown]
  - Brain natriuretic peptide increased [Unknown]
  - Pericardial effusion [Unknown]
  - Right ventricular failure [Unknown]
  - Hypotension [Unknown]
  - Pain in jaw [Unknown]
  - Dry mouth [Unknown]
  - Multiple allergies [Unknown]
  - Cor pulmonale [Unknown]
  - Fluid retention [Unknown]
  - Headache [Unknown]
  - Pain [Unknown]
  - Oedema [Unknown]
  - Migraine [Unknown]
  - Abdominal rigidity [Unknown]
  - Feeling abnormal [Unknown]
  - Weight increased [Unknown]
  - Nausea [Unknown]
  - Dry eye [Unknown]
  - Oedema peripheral [Unknown]
  - Energy increased [Unknown]
  - Flushing [Unknown]
  - Ascites [Unknown]
  - Condition aggravated [Unknown]

NARRATIVE: CASE EVENT DATE: 20170308
